FAERS Safety Report 8923157 (Version 2)
Quarter: 2013Q4

REPORT INFORMATION
  Report Type: Spontaneous
  Country: US (occurrence: US)
  Receive Date: 20121123
  Receipt Date: 20131104
  Transmission Date: 20140711
  Serious: Yes (Other)
  Sender: FDA-Public Use
  Company Number: US-JNJFOC-20121107581

PATIENT
  Age: 57 Year
  Sex: Female

DRUGS (1)
  1. NICORETTE FRUIT CHILL OTC 2MG [Suspect]
     Indication: SMOKING CESSATION THERAPY
     Route: 002

REACTIONS (4)
  - Intentional drug misuse [Unknown]
  - Nicotine dependence [Not Recovered/Not Resolved]
  - Tongue discolouration [Not Recovered/Not Resolved]
  - Product quality issue [Unknown]
